FAERS Safety Report 18544452 (Version 6)
Quarter: 2022Q3

REPORT INFORMATION
  Report Type: Spontaneous
  Country: JP (occurrence: JP)
  Receive Date: 20201125
  Receipt Date: 20220714
  Transmission Date: 20221027
  Serious: Yes (Other)
  Sender: FDA-Public Use
  Company Number: JP-GLAXOSMITHKLINE-JP2020JPN172631

PATIENT

DRUGS (5)
  1. SERETIDE [Suspect]
     Active Substance: FLUTICASONE PROPIONATE\SALMETEROL XINAFOATE
     Indication: Asthma
     Dosage: 500 ?G, BID
     Route: 055
     Dates: start: 201202, end: 201712
  2. SERETIDE [Concomitant]
     Active Substance: FLUTICASONE PROPIONATE\SALMETEROL XINAFOATE
     Indication: Asthma
     Dosage: UNK
     Route: 055
     Dates: start: 201712
  3. NIFEDIPINE CR TABLETS [Concomitant]
     Indication: Hypertension
     Dosage: UNK
     Route: 048
     Dates: start: 19970820
  4. CANDESARTAN CILEXETIL TABLET [Concomitant]
     Indication: Hypertension
     Dosage: UNK
     Route: 048
     Dates: start: 19970820
  5. SILODOSIN [Concomitant]
     Active Substance: SILODOSIN
     Indication: Benign prostatic hyperplasia
     Dosage: UNK
     Route: 048
     Dates: start: 20091027

REACTIONS (7)
  - Spinal compression fracture [Recovered/Resolved]
  - Diabetes mellitus [Unknown]
  - Gastric cancer [Unknown]
  - Colon cancer [Unknown]
  - Prostate cancer [Unknown]
  - Pneumonia [Unknown]
  - Osteoporosis [Recovering/Resolving]

NARRATIVE: CASE EVENT DATE: 20161206
